FAERS Safety Report 6207644-5 (Version None)
Quarter: 2009Q2

REPORT INFORMATION
  Report Type: 
  Country: None (occurrence: None)
  Receive Date: 20090528
  Receipt Date: 20090518
  Transmission Date: 20091009
  Serious: Yes (Death)
  Sender: FDA-Public Use
  Company Number: JP-BAXTER-2009BH009003

PATIENT
  Age: 46 Year
  Sex: Male

DRUGS (7)
  1. IFOSFAMIDE [Suspect]
     Indication: TESTIS CANCER
     Route: 065
  2. ETOPOSIDE [Suspect]
     Indication: TESTIS CANCER
     Route: 065
  3. CISPLATIN [Concomitant]
     Indication: TESTIS CANCER
     Route: 065
  4. IRINOTECAN HYDROCHLORIDE [Concomitant]
     Indication: TESTIS CANCER
     Route: 065
  5. DOCETAXEL HYDRATE [Concomitant]
     Indication: TESTIS CANCER
     Route: 065
  6. METHOTREXATE [Concomitant]
     Indication: TESTIS CANCER
     Route: 065
  7. ACTINOMYCIN D [Concomitant]
     Indication: TESTIS CANCER
     Route: 065

REACTIONS (1)
  - LEUKAEMIA [None]
